FAERS Safety Report 20124361 (Version 1)
Quarter: 2021Q4

REPORT INFORMATION
  Report Type: Spontaneous
  Country: US (occurrence: US)
  Receive Date: 20211129
  Receipt Date: 20211129
  Transmission Date: 20220304
  Serious: Yes (Other)
  Sender: FDA-Public Use
  Company Number: US-LUPIN PHARMACEUTICALS INC.-2021-22853

PATIENT
  Age: 22 Year
  Sex: Male

DRUGS (7)
  1. VORICONAZOLE [Suspect]
     Active Substance: VORICONAZOLE
     Indication: Meningitis coccidioides
     Dosage: 300 MILLIGRAM, BID
     Route: 048
  2. VORICONAZOLE [Suspect]
     Active Substance: VORICONAZOLE
     Dosage: 300 MILLIGRAM, BID
     Route: 042
  3. FLUCONAZOLE [Suspect]
     Active Substance: FLUCONAZOLE
     Indication: Meningitis coccidioides
     Dosage: 600 MILLIGRAM, BID
     Route: 048
  4. FLUCONAZOLE [Suspect]
     Active Substance: FLUCONAZOLE
     Dosage: 600 MILLIGRAM, BID
     Route: 042
  5. AMPHOTERICIN B [Suspect]
     Active Substance: AMPHOTERICIN B
     Indication: Meningitis coccidioides
     Dosage: UNK UNK, QD 5-10 MG/KG ((LIPOSOMAL AMPHOTERICIN-B))
     Route: 042
     Dates: start: 2019
  6. AMPHOTERICIN B [Suspect]
     Active Substance: AMPHOTERICIN B
     Dosage: UNK
     Route: 037
     Dates: start: 2019
  7. POSACONAZOLE [Suspect]
     Active Substance: POSACONAZOLE
     Indication: Meningitis coccidioides
     Dosage: UNK, QD (300-600 MG)
     Route: 048

REACTIONS (1)
  - Therapeutic product effect incomplete [Unknown]
